FAERS Safety Report 6900026-X (Version None)
Quarter: 2010Q3

REPORT INFORMATION
  Report Type: 
  Country: None (occurrence: None)
  Receive Date: 20100803
  Receipt Date: 20100727
  Transmission Date: 20110219
  Serious: Yes (Other)
  Sender: FDA-Public Use
  Company Number: SE-B.I. PHARMACEUTICALS,INC./RIDGEFIELD-2010-DE-03979GD

PATIENT
  Age: 66 Year
  Sex: Male

DRUGS (1)
  1. CATAPRESAN [Suspect]
     Indication: NEURALGIA
     Dosage: 25 MCG
     Route: 037

REACTIONS (4)
  - DIZZINESS [None]
  - DYSPNOEA [None]
  - HYPOTENSION [None]
  - SEDATION [None]
